FAERS Safety Report 8141054-9 (Version None)
Quarter: 2012Q1

REPORT INFORMATION
  Report Type: 
  Country: None (occurrence: None)
  Receive Date: 20120216
  Receipt Date: 20120210
  Transmission Date: 20120608
  Serious: Yes (Other)
  Sender: FDA-Public Use
  Company Number: US-TEVA-322259USA

PATIENT
  Age: 84 Year
  Sex: Female

DRUGS (3)
  1. DONEPEZIL HCL [Suspect]
     Indication: DEMENTIA
     Dosage: + 10 MG GENERIC DONEPEZIL
     Route: 048
     Dates: start: 20111213, end: 20120128
  2. DONEPEZIL HCL [Suspect]
     Route: 048
     Dates: start: 20120129
  3. DONEPEZIL HCL [Suspect]
     Indication: DEMENTIA
     Route: 048
     Dates: start: 20100101, end: 20111212

REACTIONS (8)
  - FALL [None]
  - DIARRHOEA HAEMORRHAGIC [None]
  - ANAEMIA [None]
  - TOOTH LOSS [None]
  - MEDICATION ERROR [None]
  - DEHYDRATION [None]
  - ACCIDENTAL OVERDOSE [None]
  - JAW FRACTURE [None]
